FAERS Safety Report 5315269-9 (Version None)
Quarter: 2007Q2

REPORT INFORMATION
  Report Type: 
  Country: None (occurrence: None)
  Receive Date: 20070502
  Receipt Date: 20070420
  Transmission Date: 20071010
  Serious: Yes (Hospitalization)
  Sender: FDA-Public Use
  Company Number: US-PFIZER INC-2007032231

PATIENT

DRUGS (2)
  1. LYRICA [Suspect]
  2. VALIUM [Suspect]

REACTIONS (1)
  - CONVULSION [None]
